FAERS Safety Report 18246116 (Version 1)
Quarter: 2020Q3

REPORT INFORMATION
  Report Type: Spontaneous
  Country: US (occurrence: US)
  Receive Date: 20200908
  Receipt Date: 20200908
  Transmission Date: 20201103
  Serious: Yes (Hospitalization)
  Sender: FDA-Public Use
  Company Number: None

PATIENT
  Age: 88 Year
  Sex: Female

DRUGS (9)
  1. ASPIRIN. [Concomitant]
     Active Substance: ASPIRIN
  2. RANOLAZINE. [Concomitant]
     Active Substance: RANOLAZINE
  3. FUROSEMIDE. [Concomitant]
     Active Substance: FUROSEMIDE
  4. MEMANTINE. [Concomitant]
     Active Substance: MEMANTINE
  5. METOPROL SUC ER [Concomitant]
  6. PANTOPRAZOLE [Concomitant]
     Active Substance: PANTOPRAZOLE
  7. REPATHA [Suspect]
     Active Substance: EVOLOCUMAB
     Indication: TYPE V HYPERLIPIDAEMIA
     Route: 058
     Dates: start: 20190805
  8. LATANOPROST. [Concomitant]
     Active Substance: LATANOPROST
  9. LORAZEPAM. [Concomitant]
     Active Substance: LORAZEPAM

REACTIONS (4)
  - Blood iron decreased [None]
  - Therapy interrupted [None]
  - Ulcer [None]
  - Blood sodium decreased [None]

NARRATIVE: CASE EVENT DATE: 20200908
